FAERS Safety Report 11256908 (Version 1)
Quarter: 2015Q3

REPORT INFORMATION
  Report Type: Spontaneous
  Country: US (occurrence: US)
  Receive Date: 20150709
  Receipt Date: 20150709
  Transmission Date: 20151125
  Serious: No
  Sender: FDA-Public Use
  Company Number: US-PURDUE-USA-2014-0119888

PATIENT
  Sex: Female
  Weight: 65.76 kg

DRUGS (1)
  1. BUTRANS [Suspect]
     Active Substance: BUPRENORPHINE
     Indication: PAIN
     Dosage: 15 MCG/HR, WEEKLY
     Route: 062
     Dates: start: 20140611, end: 20141217

REACTIONS (4)
  - Application site erythema [Recovered/Resolved]
  - Application site vesicles [Recovered/Resolved]
  - Application site discharge [Recovered/Resolved]
  - Administration site odour [Recovered/Resolved]
